FAERS Safety Report 5808971-3 (Version None)
Quarter: 2008Q3

REPORT INFORMATION
  Report Type: 
  Country: None (occurrence: None)
  Receive Date: 20080710
  Receipt Date: 20080710
  Transmission Date: 20090109
  Serious: Yes (Life-Threatening, Disabling, Other)
  Sender: FDA-Public Use
  Company Number: None

PATIENT
  Age: 28 Year
  Sex: Female
  Weight: 58.9676 kg

DRUGS (1)
  1. MIRENA [Suspect]
     Indication: CONTRACEPTION
     Dosage: 1 DEVICE   5 YEAR DEVICE  INTRA-UTERI  A LITTLE OVER ONE YEAR
     Route: 015
     Dates: start: 20070401, end: 20080604

REACTIONS (8)
  - ANXIETY [None]
  - CHEST DISCOMFORT [None]
  - FUNGAL INFECTION [None]
  - MOOD SWINGS [None]
  - POST PROCEDURAL HAEMORRHAGE [None]
  - SINUSITIS [None]
  - UPPER RESPIRATORY TRACT INFECTION [None]
  - VAGINAL HAEMORRHAGE [None]
